FAERS Safety Report 19340241 (Version 2)
Quarter: 2021Q2

REPORT INFORMATION
  Report Type: Report from Study
  Country: None (occurrence: GB)
  Receive Date: 20210530
  Receipt Date: 20210621
  Transmission Date: 20210717
  Serious: Yes (Hospitalization)
  Sender: FDA-Public Use
  Company Number: GB-ABBVIE-21K-167-3925379-00

PATIENT
  Age: 65 Year
  Sex: Male
  Weight: 114 kg

DRUGS (3)
  1. SKYRIZI [Suspect]
     Active Substance: RISANKIZUMAB-RZAA
     Indication: PSORIASIS
     Route: 058
     Dates: start: 2020
  2. COVID?19 VACCINE [Concomitant]
     Dosage: SECOND DOSE
     Route: 030
  3. COVID?19 VACCINE [Concomitant]
     Indication: COVID-19 IMMUNISATION
     Dosage: FIRST DOSE
     Route: 030

REACTIONS (5)
  - Pneumonia [Recovering/Resolving]
  - Impaired work ability [Unknown]
  - Musculoskeletal disorder [Unknown]
  - Feeling abnormal [Unknown]
  - Unevaluable event [Not Recovered/Not Resolved]

NARRATIVE: CASE EVENT DATE: 2021
